FAERS Safety Report 4269343-9 (Version None)
Quarter: 2004Q1

REPORT INFORMATION
  Report Type: 
  Country: None (occurrence: None)
  Receive Date: 20040108
  Receipt Date: 20031223
  Transmission Date: 20041129
  Serious: Yes (Life-Threatening, Hospitalization)
  Sender: FDA-Public Use
  Company Number: A01200305616

PATIENT
  Age: 73 Year
  Sex: Male

DRUGS (4)
  1. STILNOX - (ZOLPIDEM) - TABLET - 10 MG [Suspect]
     Indication: INSOMNIA
     Dosage: 5 MG OD; ORAL
     Route: 048
     Dates: start: 20031110, end: 20031112
  2. RIVASTIGMINE [Concomitant]
  3. PROLOPA (MODOPAR) [Concomitant]
  4. HALOPERIDOL [Concomitant]

REACTIONS (3)
  - CENTRAL NERVOUS SYSTEM LESION [None]
  - CONVULSION [None]
  - PSYCHOMOTOR HYPERACTIVITY [None]
